FAERS Safety Report 5133569-2 (Version None)
Quarter: 2006Q4

REPORT INFORMATION
  Report Type: 
  Country: None (occurrence: None)
  Receive Date: 20061024
  Receipt Date: 20060908
  Transmission Date: 20070319
  Serious: Yes (Other)
  Sender: FDA-Public Use
  Company Number: 2006GB01617

PATIENT
  Sex: Female
  Weight: 67 kg

DRUGS (2)
  1. QUETIAPINE [Suspect]
     Indication: HYPOMANIA
     Route: 048
     Dates: start: 20060601
  2. LITHIUM CARBONATE [Concomitant]
     Indication: HYPOMANIA
     Route: 048

REACTIONS (1)
  - HEPATIC ENZYME INCREASED [None]
